FAERS Safety Report 5777298-0 (Version None)
Quarter: 2008Q2

REPORT INFORMATION
  Report Type: 
  Country: None (occurrence: None)
  Receive Date: 20080618
  Receipt Date: 20080612
  Transmission Date: 20081010
  Serious: Yes (Hospitalization)
  Sender: FDA-Public Use
  Company Number: FR-AVENTIS-200812239FR

PATIENT
  Age: 82 Year
  Sex: Male

DRUGS (4)
  1. FLAGYL [Suspect]
     Dates: start: 20080323, end: 20080404
  2. PRIMPERAN                          /00041901/ [Suspect]
     Dates: start: 20080401, end: 20080404
  3. AUGMENTIN '125' [Suspect]
     Dates: start: 20080323, end: 20080404
  4. AMIKACIN [Concomitant]
     Dates: start: 20080323, end: 20080404

REACTIONS (1)
  - BONE MARROW FAILURE [None]
